FAERS Safety Report 8470878-3 (Version None)
Quarter: 2012Q2

REPORT INFORMATION
  Report Type: 
  Country: None (occurrence: None)
  Receive Date: 20120323
  Receipt Date: 20111010
  Transmission Date: 20120825
  Serious: Yes (Hospitalization, Other)
  Sender: FDA-Public Use
  Company Number: 163-21880-11081662

PATIENT
  Age: 86 Year
  Sex: Male
  Weight: 77.4 kg

DRUGS (5)
  1. REVLIMID [Suspect]
     Indication: MYELOFIBROSIS
     Dosage: 10 MG, DAILY FOR 21 DAYS AND 7 DAYS OFF, PO 5 MG, 1 IN 1 D, PO
     Route: 048
     Dates: start: 20110526
  2. REVLIMID [Suspect]
     Indication: MYELOFIBROSIS
     Dosage: 10 MG, DAILY FOR 21 DAYS AND 7 DAYS OFF, PO 5 MG, 1 IN 1 D, PO
     Route: 048
     Dates: start: 20110901, end: 20110913
  3. COUMADIN [Concomitant]
  4. PLAVIX [Concomitant]
  5. PREDNISONE TAB [Concomitant]

REACTIONS (3)
  - HAEMOGLOBIN DECREASED [None]
  - CONTUSION [None]
  - ASTHENIA [None]
